FAERS Safety Report 15599379 (Version 2)
Quarter: 2018Q4

REPORT INFORMATION
  Report Type: Spontaneous
  Country: ZA (occurrence: ZA)
  Receive Date: 20181108
  Receipt Date: 20181120
  Transmission Date: 20190205
  Serious: Yes (Death)
  Sender: FDA-Public Use
  Company Number: ZA-PFIZER INC-2018457108

PATIENT
  Age: 96 Year
  Sex: Female

DRUGS (6)
  1. ECOTRIN [Suspect]
     Active Substance: ASPIRIN
     Dosage: 81 MG, UNK
  2. UNAT [TORASEMIDE] [Suspect]
     Active Substance: TORSEMIDE
     Dosage: 10 MG, UNK
  3. ATACAND [Suspect]
     Active Substance: CANDESARTAN CILEXETIL
     Dosage: 8 MG, UNK
  4. CELEBREX [Suspect]
     Active Substance: CELECOXIB
     Indication: PAIN
     Dosage: 200 MG, AS NEEDED
     Dates: end: 201807
  5. LANCAP [Suspect]
     Active Substance: LANSOPRAZOLE
     Dosage: 30 MG, UNK
  6. SPIRACTIN (SPIRONOLACTONE) [Suspect]
     Active Substance: SPIRONOLACTONE
     Dosage: 25 MG, UNK

REACTIONS (5)
  - Abdominal pain upper [Unknown]
  - Decreased appetite [Unknown]
  - Death [Fatal]
  - Heart rate irregular [Unknown]
  - Stomach mass [Unknown]

NARRATIVE: CASE EVENT DATE: 201809
